FAERS Safety Report 24983266 (Version 2)
Quarter: 2025Q2

REPORT INFORMATION
  Report Type: Spontaneous
  Country: JP (occurrence: JP)
  Receive Date: 20250219
  Receipt Date: 20250401
  Transmission Date: 20250717
  Serious: Yes (Hospitalization, Other)
  Sender: TAKEDA
  Company Number: JP-TAKEDA-2024TJP018003

PATIENT
  Age: 61 Year
  Sex: Female
  Weight: 57 kg

DRUGS (4)
  1. FRUZAQLA [Suspect]
     Active Substance: FRUQUINTINIB
     Indication: Colorectal cancer recurrent
     Dosage: 4 MILLIGRAM, QD
     Dates: start: 20241128, end: 20250220
  2. AMLODIPINE [Concomitant]
     Active Substance: AMLODIPINE BESYLATE
     Dosage: 5 MILLIGRAM, BID
  3. SYMPROIC [Concomitant]
     Active Substance: NALDEMEDINE TOSYLATE
     Dosage: 0.2 MILLIGRAM, QD
  4. OXYCODONE [Concomitant]
     Active Substance: OXYCODONE
     Dosage: 15 MILLIGRAM, BID

REACTIONS (4)
  - Ascites [Not Recovered/Not Resolved]
  - Dehydration [Recovering/Resolving]
  - Hypertension [Recovered/Resolved]
  - Palmar-plantar erythrodysaesthesia syndrome [Recovered/Resolved]

NARRATIVE: CASE EVENT DATE: 20241212
